FAERS Safety Report 17407806 (Version 2)
Quarter: 2020Q2

REPORT INFORMATION
  Report Type: Spontaneous
  Country: US (occurrence: US)
  Receive Date: 20200212
  Receipt Date: 20200626
  Transmission Date: 20200713
  Serious: No
  Sender: FDA-Public Use
  Company Number: US-PFIZER INC-2016594316

PATIENT
  Age: 78 Year
  Sex: Male
  Weight: 88 kg

DRUGS (7)
  1. LYRICA [Suspect]
     Active Substance: PREGABALIN
     Indication: POLYNEUROPATHY
     Dosage: 150 MG, 3X/DAY
     Route: 048
     Dates: start: 20140103
  2. ATENOLOL. [Concomitant]
     Active Substance: ATENOLOL
     Indication: ESSENTIAL HYPERTENSION
     Dosage: 12.5 MG, DAILY (25MG TAKE 1/2 TABLET DAILY )
     Route: 048
     Dates: start: 20140103
  3. LYRICA [Suspect]
     Active Substance: PREGABALIN
     Indication: NEUROPATHY PERIPHERAL
  4. ECONAZOLE NITRATE. [Concomitant]
     Active Substance: ECONAZOLE NITRATE
     Indication: TINEA CRURIS
     Dosage: UNK, 2X/DAY (APPLY SPARINGLY TO THE AFFECTED AREA(S) TWICE DAILY)
     Dates: start: 20160301
  5. ASPIRIN (E.C.) [Concomitant]
     Active Substance: ASPIRIN
     Dosage: 81 MG, DAILY
     Route: 048
     Dates: start: 20140103
  6. TRIAMCINOLONE ACETONIDE. [Concomitant]
     Active Substance: TRIAMCINOLONE ACETONIDE
     Dosage: UNK , 2X/DAY (APPLY TO AFFECTED AREA TWICE DAILY)
     Dates: start: 20160526
  7. TAMSULOSIN HCL [Concomitant]
     Active Substance: TAMSULOSIN HYDROCHLORIDE
     Dosage: 0.8 MG, 1X/DAY (0.4MG TAKE 2 CAPSULE BEDTIME)
     Route: 048
     Dates: start: 20141013

REACTIONS (1)
  - Cerebral disorder [Recovering/Resolving]
